FAERS Safety Report 17119689 (Version 1)
Quarter: 2019Q4

REPORT INFORMATION
  Report Type: Spontaneous
  Country: US (occurrence: US)
  Receive Date: 20191206
  Receipt Date: 20191206
  Transmission Date: 20200122
  Serious: Yes (Hospitalization)
  Sender: FDA-Public Use
  Company Number: US-TEVA-2019-US-1149918

PATIENT
  Age: 58 Year
  Sex: Male

DRUGS (20)
  1. FENTANYL. [Suspect]
     Active Substance: FENTANYL
     Indication: PAIN
     Dosage: 100 MG/HOUR
     Route: 062
  2. OXYCODONE [Concomitant]
     Active Substance: OXYCODONE
     Dosage: EVERY 8 HOURS
     Route: 048
  3. TRAZODONE [Concomitant]
     Active Substance: TRAZODONE HYDROCHLORIDE
     Indication: SLEEP DISORDER
     Route: 048
  4. HALOPERIDOL. [Concomitant]
     Active Substance: HALOPERIDOL
     Route: 042
  5. METHADONE [Concomitant]
     Active Substance: METHADONE HYDROCHLORIDE
     Indication: PAIN
     Route: 042
  6. FENTANYL. [Suspect]
     Active Substance: FENTANYL
     Dosage: 150 MG/HOUR
     Route: 062
  7. HYDROMORPHONE [Interacting]
     Active Substance: HYDROMORPHONE
     Indication: PAIN
     Dosage: 4 MG/HOUR, PATIENT-CONTROLLED ANALGESIC PUMP
     Route: 042
  8. HYDROMORPHONE [Interacting]
     Active Substance: HYDROMORPHONE
     Dosage: AT 2 MG/H BASAL RATE PLUS 2MG EVERY 20- MINUTE DEMAND DOSE
     Route: 042
  9. DEXMEDETOMIDINE. [Concomitant]
     Active Substance: DEXMEDETOMIDINE
     Route: 065
  10. HYDROMORPHONE [Interacting]
     Active Substance: HYDROMORPHONE
     Dosage: PCA SETTING WAS INCREASED TO 6 MG/H BASAL RATE AND 4MG EVERY 15 MINUTES DEMAND SETTINGS
     Route: 042
  11. METHADONE [Concomitant]
     Active Substance: METHADONE HYDROCHLORIDE
     Indication: PAIN
     Dosage: DOSE INCREASED
     Route: 042
  12. NORTRIPTYLINE [Concomitant]
     Active Substance: NORTRIPTYLINE
     Indication: PAIN
     Dosage: EVERY MORNING
     Route: 048
  13. OCTREOTIDE. [Concomitant]
     Active Substance: OCTREOTIDE
     Route: 042
  14. DEXAMETHASONE. [Concomitant]
     Active Substance: DEXAMETHASONE
     Route: 042
  15. OXYCODONE [Concomitant]
     Active Substance: OXYCODONE
     Indication: PAIN
     Dosage: 10 MG BY MOUTH EVERY 4 HOURS AS NEEDED UPON DISCHARGE
     Route: 048
  16. MORPHINE [Interacting]
     Active Substance: MORPHINE
     Indication: PAIN
     Dosage: BASAL RATE OF 25 MG/H AND DEMAND DOSING OF 15 MG EVERY 20 MINUTES.
     Route: 065
  17. FENTANYL. [Suspect]
     Active Substance: FENTANYL
     Dosage: 200 MG/HOUR
     Route: 062
  18. METHADONE [Concomitant]
     Active Substance: METHADONE HYDROCHLORIDE
     Indication: PAIN
     Dosage: THERAPY CONTINUED AT 20 MG THREE TIMES PER DAY
     Route: 042
  19. LORAZEPAM. [Suspect]
     Active Substance: LORAZEPAM
     Indication: ANXIETY
     Dosage: 2 MILLIGRAM DAILY; EVERY 12 HR
     Route: 048
  20. HYDROMORPHONE [Interacting]
     Active Substance: HYDROMORPHONE
     Dosage: PCA SETTINGS WERE INCREASED TO 4 MG/H BASAL RATE AND 3MG EVERY 20 MINUTES DEMAND DOSE.
     Route: 042

REACTIONS (5)
  - Myoclonus [Unknown]
  - Delirium [Unknown]
  - Drug interaction [Unknown]
  - Confusional state [Unknown]
  - Tachyphylaxis [Unknown]
